FAERS Safety Report 21599295 (Version 1)
Quarter: 2022Q4

REPORT INFORMATION
  Report Type: Spontaneous
  Country: US (occurrence: None)
  Receive Date: 20221114
  Receipt Date: 20221114
  Transmission Date: 20230112
  Serious: No
  Sender: FDA-Public Use
  Company Number: None

PATIENT
  Age: 62 Year
  Sex: Male

DRUGS (1)
  1. ORENCIA [Suspect]
     Active Substance: ABATACEPT
     Dosage: OTHER FREQUENCY : UNKNOWN;?
     Route: 058
     Dates: start: 202207

REACTIONS (2)
  - Heart rate increased [None]
  - Arrhythmia [None]

NARRATIVE: CASE EVENT DATE: 20221114
